FAERS Safety Report 25710389 (Version 1)
Quarter: 2025Q3

REPORT INFORMATION
  Report Type: Spontaneous
  Country: CA (occurrence: CA)
  Receive Date: 20250821
  Receipt Date: 20250821
  Transmission Date: 20251020
  Serious: Yes (Other)
  Sender: AMERICAN REGENT
  Company Number: CA-AMERICAN REGENT INC-2025002754

PATIENT
  Age: 49 Year
  Sex: Female

DRUGS (1)
  1. VENOFER [Suspect]
     Active Substance: IRON SUCROSE
     Indication: Product used for unknown indication
     Route: 042
     Dates: start: 20250303, end: 20250303

REACTIONS (15)
  - Cold sweat [Recovered/Resolved]
  - Vision blurred [Recovered/Resolved]
  - Anxiety [Recovering/Resolving]
  - Burning sensation [Unknown]
  - Discomfort [Unknown]
  - Erythema [Recovering/Resolving]
  - Rash papular [Recovered/Resolved]
  - Urticaria [Recovered/Resolved]
  - Hyperhidrosis [Recovered/Resolved]
  - Abdominal pain upper [Unknown]
  - Dizziness [Unknown]
  - Hypersensitivity [Unknown]
  - Joint swelling [Recovered/Resolved]
  - Pruritus [Unknown]
  - Incorrect product administration duration [Unknown]

NARRATIVE: CASE EVENT DATE: 20250303
